FAERS Safety Report 7486662-3 (Version None)
Quarter: 2011Q2

REPORT INFORMATION
  Report Type: 
  Country: None (occurrence: None)
  Receive Date: 20110517
  Receipt Date: 20100728
  Transmission Date: 20111010
  Serious: No
  Sender: FDA-Public Use
  Company Number: US-NOVEN-ALL1-2010-04050

PATIENT

DRUGS (1)
  1. DAYTRANA [Suspect]
     Dosage: 20 MG, OTHER (ONE PATCH PLACED IN AM, AN ADDITIONAL PATCH ADDED AT A LATER TIME)
     Route: 062
     Dates: start: 20100727

REACTIONS (5)
  - INCORRECT DOSE ADMINISTERED [None]
  - SOMNOLENCE [None]
  - DRUG INEFFECTIVE [None]
  - HEADACHE [None]
  - PRODUCT QUALITY ISSUE [None]
